FAERS Safety Report 17492100 (Version 2)
Quarter: 2020Q1

REPORT INFORMATION
  Report Type: Spontaneous
  Country: US (occurrence: US)
  Receive Date: 20200304
  Receipt Date: 20200312
  Transmission Date: 20200409
  Serious: Yes (Hospitalization)
  Sender: FDA-Public Use
  Company Number: US-RECORDATI RARE DISEASES-2081253

PATIENT
  Age: 1 Month
  Sex: Female

DRUGS (1)
  1. CARBAGLU [Suspect]
     Active Substance: CARGLUMIC ACID
     Indication: HYPERGLYCINAEMIA
     Dates: start: 20200120

REACTIONS (11)
  - Neonatal respiratory distress [Unknown]
  - Tachycardia [Unknown]
  - Decreased appetite [Unknown]
  - Gastrointestinal disorder [Not Recovered/Not Resolved]
  - Metabolic disorder [Unknown]
  - Lung disorder [Unknown]
  - Dehydration [Unknown]
  - Hypophagia [Unknown]
  - Gastric pH increased [Unknown]
  - Poor feeding infant [Unknown]
  - Off label use [Unknown]

NARRATIVE: CASE EVENT DATE: 202001
